FAERS Safety Report 5021769-1 (Version None)
Quarter: 2006Q2

REPORT INFORMATION
  Report Type: 
  Country: None (occurrence: None)
  Receive Date: 20060605
  Receipt Date: 20060426
  Transmission Date: 20061013
  Serious: Yes (Death, Hospitalization)
  Sender: FDA-Public Use
  Company Number: 2006059094

PATIENT
  Sex: Female
  Weight: 120.2032 kg

DRUGS (1)
  1. BEXTRA [Suspect]
     Indication: ILL-DEFINED DISORDER
     Dosage: 10 MG (10 MG 1 IN 1D)

REACTIONS (4)
  - CARDIAC DISORDER [None]
  - CONDITION AGGRAVATED [None]
  - HYPERTENSION [None]
  - RESPIRATORY DISORDER [None]
